FAERS Safety Report 23219695 (Version 2)
Quarter: 2024Q2

REPORT INFORMATION
  Report Type: Report from Study
  Country: US (occurrence: US)
  Receive Date: 20231122
  Receipt Date: 20240512
  Transmission Date: 20240715
  Serious: Yes (Other)
  Sender: FDA-Public Use
  Company Number: US-ALXN-A202308585

PATIENT
  Sex: Male

DRUGS (1)
  1. ULTOMIRIS [Suspect]
     Active Substance: RAVULIZUMAB-CWVZ
     Indication: Myasthenia gravis
     Dosage: UNK
     Route: 065
     Dates: start: 20230623

REACTIONS (7)
  - Clostridium difficile infection [Unknown]
  - Gastrointestinal procedural complication [Unknown]
  - Diplopia [Unknown]
  - Muscular weakness [Unknown]
  - Cystitis [Unknown]
  - Drug ineffective [Unknown]
  - Fatigue [Unknown]
